FAERS Safety Report 8171378-0 (Version None)
Quarter: 2012Q1

REPORT INFORMATION
  Report Type: 
  Country: None (occurrence: None)
  Receive Date: 20120228
  Receipt Date: 20120213
  Transmission Date: 20120608
  Serious: Yes (Hospitalization)
  Sender: FDA-Public Use
  Company Number: US-WATSON-2012-03050

PATIENT
  Age: 29 Year
  Sex: Female

DRUGS (3)
  1. MORPHINE SULFATE [Suspect]
     Indication: SICKLE CELL ANAEMIA
  2. MORPHINE SULFATE [Suspect]
     Indication: PAIN
     Dosage: 100 MG, BID
     Route: 065
  3. HYDROMORPHONE HCL [Suspect]

REACTIONS (2)
  - DRUG INEFFECTIVE [None]
  - HYPERAESTHESIA [None]
